FAERS Safety Report 9849474 (Version 1)
Quarter: 2013Q4

REPORT INFORMATION
  Report Type: Spontaneous
  Country: US (occurrence: None)
  Receive Date: 20131226
  Receipt Date: 20131226
  Transmission Date: 20140711
  Serious: Yes (Other)
  Sender: FDA-Public Use
  Company Number: PHEH2013US012081

PATIENT
  Age: 69 Year
  Sex: Male

DRUGS (5)
  1. DIOVAN [Suspect]
     Dosage: 1DF (160 MG), DAILY
  2. PLAVIX (CLOPIDOGREL BISULFATE) [Concomitant]
  3. SERAX (OXAZEPAM) [Concomitant]
  4. MULTIPLE VITAMINS (ASCORBIC ACID, ERGOCALCIFEROL, FOLIC ACID, RETINOL, TOCOPHEROL, VITAMIN B NOS) [Concomitant]
  5. TESTOSTERONE (TESTOSTERONE) [Concomitant]

REACTIONS (2)
  - Blood pressure increased [None]
  - Wrong technique in drug usage process [None]
